FAERS Safety Report 5907091-7 (Version None)
Quarter: 2008Q4

REPORT INFORMATION
  Report Type: 
  Country: None (occurrence: None)
  Receive Date: 20081003
  Receipt Date: 20080922
  Transmission Date: 20090506
  Serious: Yes (Hospitalization, Other)
  Sender: FDA-Public Use
  Company Number: US-JNJFOC-20060302201

PATIENT
  Sex: Male
  Weight: 74.84 kg

DRUGS (4)
  1. REMICADE [Suspect]
     Route: 042
  2. REMICADE [Suspect]
     Indication: CROHN'S DISEASE
     Route: 042
  3. ASACOL [Concomitant]
  4. ENTOCORT EC [Concomitant]

REACTIONS (2)
  - COCCIDIOIDOMYCOSIS [None]
  - MASS [None]
